FAERS Safety Report 8623191-5 (Version None)
Quarter: 2012Q3

REPORT INFORMATION
  Report Type: 
  Country: None (occurrence: None)
  Receive Date: 20120827
  Receipt Date: 20120817
  Transmission Date: 20120928
  Serious: Yes (Hospitalization)
  Sender: FDA-Public Use
  Company Number: JP-JNJFOC-20120714844

PATIENT
  Sex: Male
  Weight: 44 kg

DRUGS (9)
  1. GOODMIN [Concomitant]
     Indication: DEMENTIA WITH LEWY BODIES
     Route: 048
     Dates: start: 20111023, end: 20111106
  2. GALANTAMINE HYDROBROMIDE [Suspect]
     Route: 048
     Dates: start: 20111210, end: 20120108
  3. RISPERDAL [Suspect]
     Indication: DEMENTIA WITH LEWY BODIES
     Route: 048
     Dates: start: 20111105
  4. GALANTAMINE HYDROBROMIDE [Suspect]
     Indication: DEMENTIA WITH LEWY BODIES
     Route: 048
     Dates: start: 20111124, end: 20111209
  5. GOODMIN [Concomitant]
     Route: 048
     Dates: start: 20111112
  6. RISPERDAL [Suspect]
     Route: 048
     Dates: start: 20111023, end: 20111104
  7. SILECE [Concomitant]
     Indication: DEMENTIA WITH LEWY BODIES
     Route: 048
     Dates: start: 20111029
  8. GALANTAMINE HYDROBROMIDE [Suspect]
     Route: 048
     Dates: start: 20111023, end: 20111123
  9. GASMOTIN [Concomitant]
     Indication: DECREASED APPETITE
     Route: 048
     Dates: start: 20111210

REACTIONS (5)
  - DELUSION [None]
  - DECREASED APPETITE [None]
  - BLOOD PRESSURE DECREASED [None]
  - PNEUMONIA ASPIRATION [None]
  - HALLUCINATION [None]
